FAERS Safety Report 12476192 (Version 1)
Quarter: 2016Q2

REPORT INFORMATION
  Report Type: Spontaneous
  Country: US (occurrence: US)
  Receive Date: 20160617
  Receipt Date: 20160617
  Transmission Date: 20160815
  Serious: No
  Sender: FDA-Public Use
  Company Number: US-DRREDDYS-USA/USA/15/0055140

PATIENT
  Age: 49 Year
  Sex: Male

DRUGS (12)
  1. TERAZOSIN [Concomitant]
     Active Substance: TERAZOSIN\TERAZOSIN HYDROCHLORIDE
     Route: 065
  2. PRAZOSIN [Suspect]
     Active Substance: PRAZOSIN
     Dosage: 1 MG IN THE MORNING, 2 MG AT NOON, AND 2 MG IN THE EVENING
     Route: 065
  3. LORAZEPAM. [Concomitant]
     Active Substance: LORAZEPAM
     Indication: PRODUCT USED FOR UNKNOWN INDICATION
     Route: 065
  4. SERTRALINE HYDROCHLORIDE. [Suspect]
     Active Substance: SERTRALINE HYDROCHLORIDE
     Route: 065
  5. ZOLPIDEM [Suspect]
     Active Substance: ZOLPIDEM\ZOLPIDEM TARTRATE
     Indication: POST-TRAUMATIC STRESS DISORDER
     Route: 065
  6. PRAZOSIN [Suspect]
     Active Substance: PRAZOSIN
     Dosage: 1 MG EVERY MORNING AND 2 MG NIGHTLY
     Route: 065
  7. PRAZOSIN [Suspect]
     Active Substance: PRAZOSIN
     Indication: PRODUCT USED FOR UNKNOWN INDICATION
     Route: 065
  8. TERAZOSIN [Concomitant]
     Active Substance: TERAZOSIN\TERAZOSIN HYDROCHLORIDE
     Indication: PRODUCT USED FOR UNKNOWN INDICATION
     Route: 065
  9. SERTRALINE HYDROCHLORIDE. [Suspect]
     Active Substance: SERTRALINE HYDROCHLORIDE
     Indication: POST-TRAUMATIC STRESS DISORDER
     Route: 065
  10. PRAZOSIN [Suspect]
     Active Substance: PRAZOSIN
     Dosage: 1 MG EVERY MORNING AND 4 MG NIGHTLY
     Route: 065
  11. TERAZOSIN [Concomitant]
     Active Substance: TERAZOSIN\TERAZOSIN HYDROCHLORIDE
     Route: 065
  12. LORAZEPAM. [Concomitant]
     Active Substance: LORAZEPAM
     Route: 065

REACTIONS (6)
  - Orthostatic hypotension [Unknown]
  - Product quality issue [Unknown]
  - Dizziness [Unknown]
  - Product use issue [Unknown]
  - Somnolence [Unknown]
  - Therapeutic response decreased [Unknown]
